FAERS Safety Report 20673501 (Version 1)
Quarter: 2022Q2

REPORT INFORMATION
  Report Type: Spontaneous
  Country: US (occurrence: None)
  Receive Date: 20220403
  Receipt Date: 20220403
  Transmission Date: 20220721
  Serious: Yes (Death)
  Sender: FDA-Public Use
  Company Number: None

PATIENT
  Age: 78 Year
  Sex: Male
  Weight: 125 kg

DRUGS (1)
  1. TOCILIZUMAB [Suspect]
     Active Substance: TOCILIZUMAB
     Indication: COVID-19 pneumonia
     Dosage: FREQUENCY : ONCE;?
     Route: 042
     Dates: start: 20210807, end: 20210807

REACTIONS (2)
  - Aspergillus infection [None]
  - Candida infection [None]

NARRATIVE: CASE EVENT DATE: 20210818
